FAERS Safety Report 24113958 (Version 1)
Quarter: 2024Q3

REPORT INFORMATION
  Report Type: Spontaneous
  Country: US (occurrence: US)
  Receive Date: 20240720
  Receipt Date: 20240720
  Transmission Date: 20241016
  Serious: No
  Sender: INSUD PHARMA
  Company Number: US-INSUD PHARMA-2407US05403

PATIENT

DRUGS (3)
  1. PROGESTERONE [Suspect]
     Active Substance: PROGESTERONE
     Indication: In vitro fertilisation
     Dosage: 0.5 ML ON DAY 1 AND THEN 1 ML ON DAYS 2-5
     Route: 065
     Dates: start: 20240630, end: 20240704
  2. PROGESTERONE [Suspect]
     Active Substance: PROGESTERONE
     Dosage: 0.5 ML ON DAY 1 AND THEN 1 ML ON DAYS 2-5
     Route: 065
     Dates: start: 20240630, end: 20240704
  3. ESTRACE [Concomitant]
     Active Substance: ESTRADIOL
     Indication: In vitro fertilisation
     Dosage: UNK
     Dates: start: 2024

REACTIONS (4)
  - Drug ineffective for unapproved indication [Unknown]
  - Progesterone abnormal [Unknown]
  - Suspected product quality issue [Unknown]
  - Product use in unapproved indication [Unknown]

NARRATIVE: CASE EVENT DATE: 20240630
